FAERS Safety Report 20102734 (Version 2)
Quarter: 2021Q4

REPORT INFORMATION
  Report Type: Spontaneous
  Country: US (occurrence: US)
  Receive Date: 20211123
  Receipt Date: 20211221
  Transmission Date: 20220303
  Serious: No
  Sender: FDA-Public Use
  Company Number: US-GSKCCFUS-Case-01219503_AE-71448

PATIENT
  Sex: Female

DRUGS (2)
  1. FLOVENT HFA [Suspect]
     Active Substance: FLUTICASONE PROPIONATE
     Indication: Atypical pneumonia
     Dosage: UNK, 110MCG INH AER 120 ACT
     Route: 055
  2. FLOVENT HFA [Suspect]
     Active Substance: FLUTICASONE PROPIONATE
     Indication: Cough

REACTIONS (7)
  - Oropharyngeal pain [Unknown]
  - Tongue coated [Recovered/Resolved]
  - Oral candidiasis [Recovered/Resolved]
  - Exposure via mucosa [Unknown]
  - Accidental exposure to product [Unknown]
  - Off label use [Unknown]
  - Product complaint [Unknown]
